FAERS Safety Report 8402646-2 (Version None)
Quarter: 2012Q2

REPORT INFORMATION
  Report Type: 
  Country: None (occurrence: None)
  Receive Date: 20120601
  Receipt Date: 20120525
  Transmission Date: 20120825
  Serious: Yes (Death, Hospitalization)
  Sender: FDA-Public Use
  Company Number: NL-ROCHE-1054078

PATIENT
  Sex: Male
  Weight: 80 kg

DRUGS (6)
  1. FLUDARABINE PHOSPHATE [Suspect]
     Indication: STEM CELL TRANSPLANT
     Dosage: MOST RECENT DOSE PRIOR TO SAE 08/FEB/2012
     Route: 042
     Dates: start: 20120206
  2. COTRIM [Concomitant]
     Dosage: LAST DOSE PRIOR TO SAE:12/APR2012
     Route: 048
     Dates: start: 20120212
  3. VALACYCLOVIR HYDROCHLORIDE [Concomitant]
     Dosage: LAST DOSE PRIOR TO SAE:12/APR2012
     Route: 048
     Dates: start: 20120212
  4. POSACONAZOLE [Concomitant]
     Dosage: LAST DOSE PRIOR TO SAE:12/APR2012
     Route: 048
     Dates: start: 20120210
  5. CYCLOSPORINE [Suspect]
     Indication: STEM CELL TRANSPLANT
     Dosage: MOST RECENT DOSE PRIOR TO SAE 24/MAR/2012
     Route: 048
     Dates: start: 20120208
  6. CELLCEPT [Suspect]
     Indication: STEM CELL TRANSPLANT
     Dosage: MOST RECENT DOSE PRIOR TO SAE 24/FEB/2012
     Route: 048
     Dates: start: 20120210

REACTIONS (2)
  - PNEUMONIA [None]
  - LEUKOENCEPHALOPATHY [None]
